FAERS Safety Report 17622733 (Version 5)
Quarter: 2023Q1

REPORT INFORMATION
  Report Type: Report from Study
  Country: US (occurrence: US)
  Receive Date: 20200403
  Receipt Date: 20230324
  Transmission Date: 20230417
  Serious: Yes (Hospitalization)
  Sender: FDA-Public Use
  Company Number: US-SHIRE-US202012246

PATIENT
  Sex: Female
  Weight: 48.073 kg

DRUGS (33)
  1. .ALPHA.1-PROTEINASE INHIBITOR HUMAN [Suspect]
     Active Substance: .ALPHA.1-PROTEINASE INHIBITOR HUMAN
     Indication: Alpha-1 antitrypsin deficiency
     Dosage: 4000 MILLIGRAM, 1/WEEK
     Route: 042
     Dates: start: 20101027
  2. .ALPHA.1-PROTEINASE INHIBITOR HUMAN [Suspect]
     Active Substance: .ALPHA.1-PROTEINASE INHIBITOR HUMAN
     Indication: Alpha-1 antitrypsin deficiency
     Dosage: 4000 MILLIGRAM, 1/WEEK
     Route: 042
     Dates: start: 20101027
  3. .ALPHA.1-PROTEINASE INHIBITOR HUMAN [Suspect]
     Active Substance: .ALPHA.1-PROTEINASE INHIBITOR HUMAN
     Dosage: 4000 MILLIGRAM, 1/WEEK
     Route: 042
     Dates: start: 20120201
  4. .ALPHA.1-PROTEINASE INHIBITOR HUMAN [Suspect]
     Active Substance: .ALPHA.1-PROTEINASE INHIBITOR HUMAN
     Dosage: 4000 MILLIGRAM, 1/WEEK
     Route: 042
     Dates: start: 20120201
  5. .ALPHA.1-PROTEINASE INHIBITOR HUMAN [Suspect]
     Active Substance: .ALPHA.1-PROTEINASE INHIBITOR HUMAN
     Dosage: 4000 MILLIGRAM, 1/WEEK
     Route: 042
     Dates: start: 20130801
  6. .ALPHA.1-PROTEINASE INHIBITOR HUMAN [Suspect]
     Active Substance: .ALPHA.1-PROTEINASE INHIBITOR HUMAN
     Dosage: 4000 MILLIGRAM, 1/WEEK
     Route: 042
     Dates: start: 20130801
  7. OXYGEN [Concomitant]
     Active Substance: OXYGEN
  8. PSEUDOEPHEDRINE HYDROCHLORIDE [Concomitant]
     Active Substance: PSEUDOEPHEDRINE HYDROCHLORIDE
  9. IBUPROFEN [Concomitant]
     Active Substance: IBUPROFEN
  10. CLINDAMYCIN [Concomitant]
     Active Substance: CLINDAMYCIN
  11. FLONASE SENSIMIST ALLERGY RELIEF [Concomitant]
     Active Substance: FLUTICASONE FUROATE
  12. ALPRAZOLAM [Concomitant]
     Active Substance: ALPRAZOLAM
  13. ZYRTEC [Concomitant]
     Active Substance: CETIRIZINE HYDROCHLORIDE
  14. CLARITIN [Concomitant]
     Active Substance: LORATADINE
  15. DIPHENHYDRAMINE [Concomitant]
     Active Substance: DIPHENHYDRAMINE
  16. HEPARIN [Concomitant]
     Active Substance: HEPARIN SODIUM
  17. LIDOCAINE AND PRILOCAINE [Concomitant]
     Active Substance: LIDOCAINE\PRILOCAINE
  18. SODIUM CHLORIDE [Concomitant]
     Active Substance: SODIUM CHLORIDE
  19. EPINEPHRINE [Concomitant]
     Active Substance: EPINEPHRINE
  20. LEXAPRO [Concomitant]
     Active Substance: ESCITALOPRAM OXALATE
  21. ALBUTEROL SULFATE [Concomitant]
     Active Substance: ALBUTEROL SULFATE
  22. NEXIUM [Concomitant]
     Active Substance: ESOMEPRAZOLE MAGNESIUM
  23. REQUIP XL [Concomitant]
     Active Substance: ROPINIROLE HYDROCHLORIDE
     Indication: Product used for unknown indication
  24. BACLOFEN [Concomitant]
     Active Substance: BACLOFEN
     Indication: Product used for unknown indication
  25. KEPPRA [Concomitant]
     Active Substance: LEVETIRACETAM
     Indication: Product used for unknown indication
  26. SINGULAIR [Concomitant]
     Active Substance: MONTELUKAST SODIUM
     Indication: Product used for unknown indication
  27. ADVAIR HFA [Concomitant]
     Active Substance: FLUTICASONE PROPIONATE\SALMETEROL XINAFOATE
     Indication: Product used for unknown indication
  28. SPIRIVA [Concomitant]
     Active Substance: TIOTROPIUM BROMIDE MONOHYDRATE
     Indication: Product used for unknown indication
  29. ACETAMINOPHEN\HYDROCODONE [Concomitant]
     Active Substance: ACETAMINOPHEN\HYDROCODONE
  30. SULFAMETHOXAZOLE AND TRIMETHOPRIM [Concomitant]
     Active Substance: SULFAMETHOXAZOLE\TRIMETHOPRIM
  31. ACETAMINOPHEN\HYDROCODONE [Concomitant]
     Active Substance: ACETAMINOPHEN\HYDROCODONE
  32. CLARITHROMYCIN [Concomitant]
     Active Substance: CLARITHROMYCIN
  33. PREDNISONE [Concomitant]
     Active Substance: PREDNISONE

REACTIONS (9)
  - Post procedural infection [Unknown]
  - Sinusitis [Unknown]
  - Hypoglycaemia [Unknown]
  - Hypoacusis [Recovered/Resolved]
  - Corneal abrasion [Unknown]
  - Procedural pain [Unknown]
  - Dizziness [Recovered/Resolved]
  - Product dose omission issue [Unknown]
  - Inappropriate schedule of product administration [Unknown]
